FAERS Safety Report 5904309-1 (Version None)
Quarter: 2008Q4

REPORT INFORMATION
  Report Type: 
  Country: None (occurrence: None)
  Receive Date: 20081001
  Receipt Date: 20080812
  Transmission Date: 20090506
  Serious: Yes (Life-Threatening, Hospitalization)
  Sender: FDA-Public Use
  Company Number: US-BRISTOL-MYERS SQUIBB COMPANY-14272280

PATIENT
  Age: 84 Year
  Sex: Male

DRUGS (12)
  1. SPRYCEL [Suspect]
     Indication: ACUTE LYMPHOCYTIC LEUKAEMIA
     Dosage: INTERRUPTED ON 18-JUL-2008
     Route: 048
     Dates: start: 20071001, end: 20080718
  2. AMARYL [Concomitant]
  3. NORVASC [Concomitant]
  4. SYNTHROID [Concomitant]
  5. TOPROL-XL [Concomitant]
  6. DIOVAN [Concomitant]
  7. MULTI-VITAMIN [Concomitant]
  8. SEROQUEL [Concomitant]
  9. PROTONIX [Concomitant]
  10. FLOMAX [Concomitant]
  11. MIZAR [Concomitant]
  12. CARAFATE [Concomitant]

REACTIONS (1)
  - SUBDURAL HAEMORRHAGE [None]
